FAERS Safety Report 10357396 (Version 1)
Quarter: 2014Q3

REPORT INFORMATION
  Report Type: Spontaneous
  Country: US (occurrence: None)
  Receive Date: 20140730
  Receipt Date: 20140730
  Transmission Date: 20150326
  Serious: Yes (Disabling)
  Sender: FDA-Public Use
  Company Number: None

PATIENT
  Sex: Female
  Weight: 52.16 kg

DRUGS (4)
  1. AMIODARONE [Suspect]
     Active Substance: AMIODARONE
     Indication: HEART RATE INCREASED
     Dosage: 1 TAB EVERY DAY  BY MOUTH
     Route: 048
     Dates: start: 20130201, end: 201305
  2. ASPIRIN. [Concomitant]
     Active Substance: ASPIRIN
  3. VIT - CALCIUM, B-6, B-12 [Concomitant]
  4. TRIAMT/HCTZ [Concomitant]
     Active Substance: HYDROCHLOROTHIAZIDE\TRIAMTERENE

REACTIONS (3)
  - Peripheral swelling [None]
  - Joint swelling [None]
  - Skin discolouration [None]
